FAERS Safety Report 4864272-1 (Version None)
Quarter: 2005Q4

REPORT INFORMATION
  Report Type: 
  Country: None (occurrence: None)
  Receive Date: 20051222
  Receipt Date: 20051214
  Transmission Date: 20060501
  Serious: Yes (Life-Threatening)
  Sender: FDA-Public Use
  Company Number: IT-JNJFOC-20051203411

PATIENT
  Age: 70 Year
  Sex: Female

DRUGS (1)
  1. CAELYX [Suspect]
     Indication: OVARIAN CANCER METASTATIC
     Route: 042

REACTIONS (3)
  - ANGINA PECTORIS [None]
  - INFUSION RELATED REACTION [None]
  - SYNCOPE [None]
